FAERS Safety Report 9767410 (Version 3)
Quarter: 2014Q1

REPORT INFORMATION
  Report Type: Spontaneous
  Country: US (occurrence: US)
  Receive Date: 20131217
  Receipt Date: 20140117
  Transmission Date: 20141002
  Serious: Yes (Hospitalization, Other)
  Sender: FDA-Public Use
  Company Number: US-ASTELLAS-2013US012878

PATIENT
  Age: 69 Year
  Sex: Male

DRUGS (16)
  1. XTANDI [Suspect]
     Indication: PROSTATE CANCER STAGE IV
     Dosage: 160 MG, UID/QD
     Route: 048
     Dates: start: 20130820, end: 20131116
  2. XTANDI [Suspect]
     Dosage: 160 MG, UID/QD
     Route: 048
     Dates: start: 20131118, end: 20131129
  3. ADVAIR [Concomitant]
     Indication: PRODUCT USED FOR UNKNOWN INDICATION
     Dosage: 1 PUFF, BID
     Route: 055
  4. FLONASE [Concomitant]
     Indication: PRODUCT USED FOR UNKNOWN INDICATION
     Dosage: 2 PUFFS IN EACH NOSTRIL, UID/QD
     Route: 045
  5. HYDROCHLOROTHIAZIDE [Concomitant]
     Indication: PRODUCT USED FOR UNKNOWN INDICATION
     Dosage: 25 MG, UID/QD
     Route: 048
  6. LISINOPRIL [Concomitant]
     Indication: PRODUCT USED FOR UNKNOWN INDICATION
     Dosage: 30 MG, UID/QD
     Route: 048
  7. LUPRON [Concomitant]
     Indication: PROSTATE CANCER STAGE IV
     Dosage: 22.5 MG, Q3 MONTHS
     Route: 030
  8. METFORMIN [Concomitant]
     Indication: DIABETES MELLITUS
     Dosage: 500 MG, BID
     Route: 048
  9. MORPHINE [Concomitant]
     Indication: PRODUCT USED FOR UNKNOWN INDICATION
     Dosage: 15 MG, Q3 HOURS PRN
     Route: 048
  10. ZOFRAN                             /00955301/ [Concomitant]
     Indication: NAUSEA
     Dosage: 8 MG, Q8 HOURS PRN
     Route: 048
  11. ZOFRAN                             /00955301/ [Concomitant]
     Indication: VOMITING
  12. PHENERGAN                          /00033001/ [Concomitant]
     Indication: PRODUCT USED FOR UNKNOWN INDICATION
     Dosage: PRN
     Route: 065
  13. PREDNISONE [Concomitant]
     Indication: PRODUCT USED FOR UNKNOWN INDICATION
     Dosage: 5 MG, BID
     Route: 048
  14. VENTOLIN                           /00139501/ [Concomitant]
     Indication: PRODUCT USED FOR UNKNOWN INDICATION
     Dosage: PRN
     Route: 065
  15. ZOCOR [Concomitant]
     Indication: PRODUCT USED FOR UNKNOWN INDICATION
     Dosage: 40 MG, UID/QD
     Route: 048
  16. ZOMETA [Concomitant]
     Indication: PROSTATE CANCER STAGE IV
     Dosage: PRN
     Route: 065

REACTIONS (3)
  - Disseminated intravascular coagulation [Not Recovered/Not Resolved]
  - Malignant neoplasm progression [Unknown]
  - Constipation [Unknown]
